FAERS Safety Report 18810944 (Version 1)
Quarter: 2021Q1

REPORT INFORMATION
  Report Type: Report from Study
  Country: PE (occurrence: PE)
  Receive Date: 20210129
  Receipt Date: 20210129
  Transmission Date: 20210419
  Serious: Yes (Hospitalization)
  Sender: FDA-Public Use
  Company Number: PE-ASTRAZENECA-2019SF76453

PATIENT
  Age: 19643 Day
  Sex: Female

DRUGS (52)
  1. DURVALUMAB. [Suspect]
     Active Substance: DURVALUMAB
     Indication: CERVIX CARCINOMA
     Route: 042
     Dates: start: 20191211, end: 20191211
  2. CARBOPLATIN. [Suspect]
     Active Substance: CARBOPLATIN
     Indication: CERVIX CARCINOMA
     Route: 042
     Dates: start: 20190930, end: 20190930
  3. BRACHYTHERAPY [Suspect]
     Active Substance: RADIATION THERAPY
     Indication: CERVIX CARCINOMA
     Route: 065
  4. SODIUM CHLORIDE. [Concomitant]
     Active Substance: SODIUM CHLORIDE
     Indication: CHEMOTHERAPY
     Dosage: 0.9 % OTHER PRE?CHEMOTHERAPY
     Route: 042
     Dates: start: 20190923, end: 20190923
  5. BETAMETHASONE. [Concomitant]
     Active Substance: BETAMETHASONE
     Indication: SKIN ABRASION
     Route: 061
     Dates: start: 20190930
  6. DURVALUMAB. [Suspect]
     Active Substance: DURVALUMAB
     Indication: CERVIX CARCINOMA
     Route: 042
     Dates: start: 20200302, end: 20200302
  7. SODIUM CHLORIDE. [Concomitant]
     Active Substance: SODIUM CHLORIDE
     Indication: CHEMOTHERAPY
     Dosage: 0.9 % OTHER PRE?CHEMOTHERAPY
     Route: 042
     Dates: start: 20190930, end: 20190930
  8. RANITIDINE. [Concomitant]
     Active Substance: RANITIDINE
     Indication: CHEMOTHERAPY
     Dosage: 50.0MG ONCE/SINGLE ADMINISTRATION
     Route: 042
     Dates: start: 20191007, end: 20191007
  9. GRANISETRON [Concomitant]
     Active Substance: GRANISETRON
     Indication: CHEMOTHERAPY
     Dosage: 3.0 MG OTHER PRE?CHEMOTHERAPY
     Route: 042
     Dates: start: 20190930, end: 20190930
  10. DEXAMETHASONE. [Concomitant]
     Active Substance: DEXAMETHASONE
     Indication: VOMITING
     Dosage: 4.0MG ONCE/SINGLE ADMINISTRATION
     Route: 042
     Dates: start: 20191031, end: 20191106
  11. CHLORPHENAMINE [Concomitant]
     Active Substance: CHLORPHENIRAMINE MALEATE
     Indication: RASH PRURITIC
     Dosage: 10.0MG ONCE/SINGLE ADMINISTRATION
     Route: 042
     Dates: start: 20191016, end: 20191016
  12. DURVALUMAB. [Suspect]
     Active Substance: DURVALUMAB
     Indication: CERVIX CARCINOMA
     Route: 042
     Dates: start: 20191016, end: 20191016
  13. DURVALUMAB. [Suspect]
     Active Substance: DURVALUMAB
     Indication: CERVIX CARCINOMA
     Route: 042
     Dates: start: 20191113, end: 20191113
  14. DURVALUMAB. [Suspect]
     Active Substance: DURVALUMAB
     Indication: CERVIX CARCINOMA
     Route: 042
     Dates: start: 20200203, end: 20200203
  15. EBRT [Suspect]
     Active Substance: RADIATION THERAPY
     Indication: CERVIX CARCINOMA
     Route: 065
  16. GRANISETRON [Concomitant]
     Active Substance: GRANISETRON
     Indication: PARAGANGLION NEOPLASM
     Dosage: 3.0 MG OTHER PRE?CHEMOTHERAPY
     Route: 042
     Dates: start: 20190923, end: 20190923
  17. GRANISETRON [Concomitant]
     Active Substance: GRANISETRON
     Indication: PARAGANGLION NEOPLASM
     Dosage: 3.0 MG OTHER PRE?CHEMOTHERAPY
     Route: 042
     Dates: start: 20190930, end: 20190930
  18. DEXAMETHASONE. [Concomitant]
     Active Substance: DEXAMETHASONE
     Indication: CHEMOTHERAPY
     Dosage: 4.0 MG OTHER PRE?CHEMOTHERAPY
     Route: 042
     Dates: start: 20190930, end: 20190930
  19. DEXAMETHASONE. [Concomitant]
     Active Substance: DEXAMETHASONE
     Indication: VOMITING
     Dosage: 8.0MG ONCE/SINGLE ADMINISTRATION
     Route: 042
     Dates: start: 20191007, end: 20191007
  20. CHLORPHENAMINE [Concomitant]
     Active Substance: CHLORPHENIRAMINE MALEATE
     Indication: CHEMOTHERAPY
     Dosage: 10.0MG ONCE/SINGLE ADMINISTRATION
     Route: 042
     Dates: start: 20191016, end: 20191016
  21. DURVALUMAB. [Suspect]
     Active Substance: DURVALUMAB
     Indication: CERVIX CARCINOMA
     Route: 042
     Dates: start: 20200106, end: 20200106
  22. CHLORPHENIRAMINE. [Concomitant]
     Active Substance: CHLORPHENIRAMINE
     Indication: CHEMOTHERAPY
     Dosage: 10.0 MG OTHER PRE?CHEMOTHERAPY
     Route: 042
     Dates: start: 20190916, end: 20190916
  23. PARACETAMOL [Concomitant]
     Active Substance: ACETAMINOPHEN
     Indication: CHEMOTHERAPY
     Dosage: 1000.0 MG OTHER PRE?CHEMOTHERAPY
     Route: 048
     Dates: start: 20190916, end: 20190916
  24. RANITIDINE. [Concomitant]
     Active Substance: RANITIDINE
     Indication: CHEMOTHERAPY
     Dosage: 50.0 MG OTHER PRE?CHEMOTHERAPY
     Route: 042
     Dates: start: 20190923, end: 20190923
  25. GRANISETRON [Concomitant]
     Active Substance: GRANISETRON
     Indication: PARAGANGLION NEOPLASM
     Dosage: 3.0MG ONCE/SINGLE ADMINISTRATION
     Route: 042
     Dates: start: 20191016, end: 20191016
  26. DEXAMETHASONE. [Concomitant]
     Active Substance: DEXAMETHASONE
     Indication: CHEMOTHERAPY
     Dosage: 8.0 MG OTHER PRE?CHEMOTHERAPY
     Route: 042
     Dates: start: 20190923, end: 20190923
  27. DEXAMETHASONE. [Concomitant]
     Active Substance: DEXAMETHASONE
     Indication: CHEMOTHERAPY
     Dosage: 8.0MG ONCE/SINGLE ADMINISTRATION
     Route: 042
     Dates: start: 20191007, end: 20191007
  28. DEXAMETHASONE. [Concomitant]
     Active Substance: DEXAMETHASONE
     Indication: CHEMOTHERAPY
     Dosage: 4.0MG ONCE/SINGLE ADMINISTRATION
     Route: 042
     Dates: start: 20191031, end: 20191106
  29. CARBOPLATIN. [Suspect]
     Active Substance: CARBOPLATIN
     Indication: CERVIX CARCINOMA
     Route: 042
     Dates: start: 20190923, end: 20190923
  30. CARBOPLATIN. [Suspect]
     Active Substance: CARBOPLATIN
     Indication: CERVIX CARCINOMA
     Route: 042
     Dates: start: 20191016, end: 20191016
  31. METFORMIN [Concomitant]
     Active Substance: METFORMIN HYDROCHLORIDE
     Indication: DIABETES MELLITUS
     Dosage: 850.0 MG OTHER Q8H
     Route: 048
     Dates: start: 2018
  32. LOSARTAN. [Concomitant]
     Active Substance: LOSARTAN
     Indication: HYPERTENSION
     Dosage: 50.0 MG OTHER Q12H
     Route: 048
     Dates: start: 1996
  33. SODIUM CHLORIDE. [Concomitant]
     Active Substance: SODIUM CHLORIDE
     Indication: CHEMOTHERAPY
     Dosage: 0.9 % OTHER PRE?CHEMOTHERAPY
     Route: 042
     Dates: start: 20190916, end: 20190916
  34. RANITIDINE. [Concomitant]
     Active Substance: RANITIDINE
     Indication: CHEMOTHERAPY
     Dosage: 50.0 MG OTHER PRE?CHEMOTHERAPY
     Route: 042
     Dates: start: 20190916, end: 20190916
  35. GRANISETRON [Concomitant]
     Active Substance: GRANISETRON
     Indication: PARAGANGLION NEOPLASM
     Dosage: 3.0MG ONCE/SINGLE ADMINISTRATION
     Route: 042
     Dates: start: 20191007, end: 20191007
  36. POTASSIUM CHLORIDE. [Concomitant]
     Active Substance: POTASSIUM CHLORIDE
     Indication: DEVELOPMENTAL HIP DYSPLASIA
     Dosage: 14.9% ONCE/SINGLE ADMINISTRATION
     Route: 042
     Dates: start: 20190930, end: 20190930
  37. DURVALUMAB. [Suspect]
     Active Substance: DURVALUMAB
     Indication: CERVIX CARCINOMA
     Route: 042
     Dates: start: 20190916, end: 20190916
  38. CARBOPLATIN. [Suspect]
     Active Substance: CARBOPLATIN
     Indication: CERVIX CARCINOMA
     Route: 042
     Dates: start: 20190916, end: 20190916
  39. CHLORPHENIRAMINE. [Concomitant]
     Active Substance: CHLORPHENIRAMINE
     Indication: CHEMOTHERAPY
     Dosage: 10.0 MG OTHER PRE?CHEMOTHERAPY
     Route: 042
     Dates: start: 20190923, end: 20190923
  40. APREPITANT. [Concomitant]
     Active Substance: APREPITANT
     Indication: CHEMOTHERAPY
     Dosage: 125.0 MG OTHER PRE?CHEMOTHERAPY
     Route: 048
     Dates: start: 20190916, end: 20190916
  41. DEXAMETHASONE. [Concomitant]
     Active Substance: DEXAMETHASONE
     Indication: CHEMOTHERAPY
     Dosage: 8.0MG ONCE/SINGLE ADMINISTRATION
     Route: 042
     Dates: start: 20191016, end: 20191016
  42. DEXAMETHASONE. [Concomitant]
     Active Substance: DEXAMETHASONE
     Indication: VOMITING
     Dosage: 8.0MG ONCE/SINGLE ADMINISTRATION
     Route: 042
     Dates: start: 20191016, end: 20191016
  43. SIAGLIPTINE [Concomitant]
     Indication: DIABETES MELLITUS
     Route: 048
     Dates: start: 20191022
  44. RANITIDINE. [Concomitant]
     Active Substance: RANITIDINE
     Indication: CHEMOTHERAPY
     Dosage: 50.0 MG OTHER PRE?CHEMOTHERAPY
     Route: 042
     Dates: start: 20190930, end: 20190930
  45. RANITIDINE. [Concomitant]
     Active Substance: RANITIDINE
     Indication: CHEMOTHERAPY
     Dosage: 50.0MG ONCE/SINGLE ADMINISTRATION
     Route: 042
     Dates: start: 20191016, end: 20191016
  46. GRANISETRON [Concomitant]
     Active Substance: GRANISETRON
     Indication: CHEMOTHERAPY
     Dosage: 3.0MG ONCE/SINGLE ADMINISTRATION
     Route: 042
     Dates: start: 20191016, end: 20191016
  47. CARBOPLATIN. [Suspect]
     Active Substance: CARBOPLATIN
     Indication: CERVIX CARCINOMA
     Route: 042
     Dates: start: 20191007, end: 20191007
  48. GRANISETRON [Concomitant]
     Active Substance: GRANISETRON
     Indication: CHEMOTHERAPY
     Dosage: 3.0 MG OTHER PRE?CHEMOTHERAPY
     Route: 042
     Dates: start: 20190923, end: 20190923
  49. GRANISETRON [Concomitant]
     Active Substance: GRANISETRON
     Indication: CHEMOTHERAPY
     Dosage: 3.0MG ONCE/SINGLE ADMINISTRATION
     Route: 042
     Dates: start: 20191007, end: 20191007
  50. DEXAMETHASONE. [Concomitant]
     Active Substance: DEXAMETHASONE
     Indication: VOMITING
     Dosage: 8.0 MG OTHER PRE?CHEMOTHERAPY
     Route: 042
     Dates: start: 20190923, end: 20190923
  51. DEXAMETHASONE. [Concomitant]
     Active Substance: DEXAMETHASONE
     Indication: VOMITING
     Dosage: 4.0 MG OTHER PRE?CHEMOTHERAPY
     Route: 042
     Dates: start: 20190930, end: 20190930
  52. DIMENHIDRINATE [Concomitant]
     Indication: VOMITING
     Dosage: 50.0MG AS REQUIRED
     Route: 042
     Dates: start: 20191031, end: 20191106

REACTIONS (1)
  - Exfoliative rash [Recovered/Resolved]

NARRATIVE: CASE EVENT DATE: 20191122
